FAERS Safety Report 5159327-0 (Version None)
Quarter: 2006Q4

REPORT INFORMATION
  Report Type: 
  Country: None (occurrence: None)
  Receive Date: 20061120
  Receipt Date: 20061110
  Transmission Date: 20070319
  Serious: Yes (Death)
  Sender: FDA-Public Use
  Company Number: CAP06000286

PATIENT
  Age: 76 Year
  Sex: Female

DRUGS (3)
  1. ACTONEL [Suspect]
     Indication: OSTEOPOROSIS
     Dosage: 35 MG ONCE WEEKLY, ORAL
     Route: 048
     Dates: start: 20020101
  2. PROPRANOLOL /00030002/ (PROPRANOLOL HYDROCHLORIDE) [Concomitant]
  3. VITAMINS [Concomitant]

REACTIONS (5)
  - CLAVICLE FRACTURE [None]
  - PNEUMONIA [None]
  - PULMONARY OEDEMA [None]
  - RESPIRATORY DISORDER [None]
  - SLEEP DISORDER [None]
